FAERS Safety Report 10182104 (Version 2)
Quarter: 2014Q2

REPORT INFORMATION
  Report Type: Spontaneous
  Country: JP (occurrence: JP)
  Receive Date: 20140520
  Receipt Date: 20140520
  Transmission Date: 20141212
  Serious: Yes (Hospitalization)
  Sender: FDA-Public Use
  Company Number: JP-ORION CORPORATION ORION PHARMA-ENT 2014-0048

PATIENT
  Age: 60 Year
  Sex: Female
  Weight: 45 kg

DRUGS (12)
  1. COMTAN [Suspect]
     Indication: PARKINSON^S DISEASE
     Route: 048
     Dates: start: 20110728, end: 20140320
  2. COMTAN [Suspect]
     Route: 065
     Dates: start: 20140411
  3. TAMIFLU [Suspect]
     Indication: HAEMOPHILUS INFECTION
     Dosage: STRENGTH: 75 MG
     Route: 048
     Dates: start: 20140311, end: 20140314
  4. MENESIT [Suspect]
     Indication: PARKINSON^S DISEASE
     Route: 048
     Dates: start: 20131226, end: 20140320
  5. MENESIT [Suspect]
     Route: 048
     Dates: start: 20140321
  6. MIRAPEX LA [Suspect]
     Indication: PARKINSON^S DISEASE
     Route: 048
     Dates: start: 20121004, end: 20140320
  7. MIRAPEX LA [Suspect]
     Route: 048
     Dates: start: 20140321
  8. ARTANE [Concomitant]
     Indication: PARKINSON^S DISEASE
     Route: 048
  9. EQUA [Concomitant]
     Indication: DIABETES MELLITUS
     Route: 048
     Dates: start: 20130418
  10. FAMOTIDINE [Concomitant]
     Indication: GASTRITIS
     Route: 048
     Dates: start: 20130613
  11. GLUFAST [Concomitant]
     Indication: DIABETES MELLITUS
     Route: 048
     Dates: start: 20130613
  12. LIVALO [Concomitant]
     Indication: DYSLIPIDAEMIA
     Route: 048
     Dates: start: 20130613

REACTIONS (7)
  - Pyrexia [Recovered/Resolved]
  - Dyskinesia [Recovered/Resolved]
  - Akinesia [Unknown]
  - Haematocrit decreased [Not Recovered/Not Resolved]
  - C-reactive protein increased [Recovering/Resolving]
  - Aspartate aminotransferase increased [Unknown]
  - Alanine aminotransferase increased [Unknown]
